FAERS Safety Report 19680527 (Version 1)
Quarter: 2021Q3

REPORT INFORMATION
  Report Type: Spontaneous
  Country: US (occurrence: US)
  Receive Date: 20210810
  Receipt Date: 20210810
  Transmission Date: 20211014
  Serious: Yes (Hospitalization)
  Sender: FDA-Public Use
  Company Number: None

PATIENT
  Age: 52 Year
  Sex: Male
  Weight: 86.2 kg

DRUGS (4)
  1. 5?FLUOROURACIL [Suspect]
     Active Substance: FLUOROURACIL
     Dates: end: 20210728
  2. ELOXATIN [Suspect]
     Active Substance: OXALIPLATIN
     Dates: end: 20210728
  3. CAMPTOSAR [Suspect]
     Active Substance: IRINOTECAN HYDROCHLORIDE
     Dates: end: 20210728
  4. LEUCOVORIN CALCIUM. [Suspect]
     Active Substance: LEUCOVORIN CALCIUM
     Dates: end: 20210728

REACTIONS (6)
  - Pain [None]
  - Back pain [None]
  - Flank pain [None]
  - Vomiting [None]
  - Haematuria [None]
  - Nausea [None]

NARRATIVE: CASE EVENT DATE: 20210808
